FAERS Safety Report 24113808 (Version 2)
Quarter: 2024Q3

REPORT INFORMATION
  Report Type: Report from Study
  Country: CO (occurrence: CO)
  Receive Date: 20240720
  Receipt Date: 20240724
  Transmission Date: 20241017
  Serious: Yes (Other)
  Sender: REGENERON
  Company Number: CO-BAYER-2024A103682

PATIENT
  Sex: Male

DRUGS (1)
  1. EYLEA [Suspect]
     Active Substance: AFLIBERCEPT
     Indication: Diabetic retinal oedema
     Dosage: UNK,RIGHT EYE, 40 MG/ML
     Dates: start: 20220725, end: 20220725

REACTIONS (1)
  - Glaucoma [Not Recovered/Not Resolved]
